FAERS Safety Report 12729035 (Version 2)
Quarter: 2016Q3

REPORT INFORMATION
  Report Type: Spontaneous
  Country: US (occurrence: US)
  Receive Date: 20160909
  Receipt Date: 20160915
  Transmission Date: 20161109
  Serious: Yes (Hospitalization)
  Sender: FDA-Public Use
  Company Number: US-HORIZON-RAV-0179-2016

PATIENT
  Age: 34 Year
  Sex: Male

DRUGS (3)
  1. MULTIVITAMINS [Concomitant]
     Active Substance: VITAMINS
  2. CITRULLINE [Concomitant]
     Active Substance: CITRULLINE
  3. RAVICTI [Suspect]
     Active Substance: GLYCEROL PHENYLBUTYRATE
     Indication: UREA CYCLE ENZYME DEFICIENCY
     Dosage: 11.6 ML DAILY
     Dates: start: 201404

REACTIONS (2)
  - Pneumonia [Recovering/Resolving]
  - Treatment noncompliance [Not Recovered/Not Resolved]
